FAERS Safety Report 4832998-1 (Version None)
Quarter: 2005Q4

REPORT INFORMATION
  Report Type: 
  Country: None (occurrence: None)
  Receive Date: 20051121
  Receipt Date: 20051109
  Transmission Date: 20060501
  Serious: Yes (Disabling)
  Sender: FDA-Public Use
  Company Number: PHEH2005US12385

PATIENT
  Age: 64 Year
  Sex: Female

DRUGS (1)
  1. GLEEVEC [Suspect]
     Indication: CHRONIC MYELOID LEUKAEMIA
     Route: 048
     Dates: start: 20050411, end: 20051001

REACTIONS (19)
  - ABDOMINAL DISCOMFORT [None]
  - ALOPECIA [None]
  - AMNESIA [None]
  - ANAEMIA [None]
  - BLOOD POTASSIUM DECREASED [None]
  - BRADYPHRENIA [None]
  - DIARRHOEA [None]
  - FATIGUE [None]
  - FEELING COLD [None]
  - FLATULENCE [None]
  - FLUID RETENTION [None]
  - MADAROSIS [None]
  - MAMMOGRAM ABNORMAL [None]
  - MOOD SWINGS [None]
  - MUSCLE SPASMS [None]
  - OEDEMA PERIPHERAL [None]
  - RASH GENERALISED [None]
  - TINNITUS [None]
  - WEIGHT DECREASED [None]
